FAERS Safety Report 8875456 (Version 2)
Quarter: 2012Q4

REPORT INFORMATION
  Report Type: Report from Study
  Country: DE (occurrence: DE)
  Receive Date: 20121029
  Receipt Date: 20121105
  Transmission Date: 20130627
  Serious: Yes (Hospitalization)
  Sender: FDA-Public Use
  Company Number: DE-009507513-1210DEU010417

PATIENT
  Age: 10 Year
  Sex: Female
  Weight: 23 kg

DRUGS (3)
  1. MK-0683 [Suspect]
     Dosage: 310 mg, UNK
     Route: 048
     Dates: start: 20120828, end: 20121012
  2. MEROPENEM [Concomitant]
     Indication: LIVER DISORDER
     Dosage: 900 mg, UNK
     Dates: start: 20121013, end: 20121017
  3. CLOTRIMAZOLE [Concomitant]
     Indication: PROPHYLAXIS
     Dosage: UNK
     Dates: start: 20120823, end: 20121023

REACTIONS (6)
  - Dysuria [Recovering/Resolving]
  - Pyrexia [Recovered/Resolved]
  - Cough [Recovered/Resolved]
  - Blood urine present [Recovering/Resolving]
  - Platelet count decreased [Recovering/Resolving]
  - Haemoglobin decreased [Recovering/Resolving]
